FAERS Safety Report 8641767 (Version 3)
Quarter: 2013Q4

REPORT INFORMATION
  Report Type: Spontaneous
  Country: US (occurrence: US)
  Receive Date: 20120628
  Receipt Date: 20131031
  Transmission Date: 20140711
  Serious: Yes (Hospitalization, Other)
  Sender: FDA-Public Use
  Company Number: US-009507513-1206USA03238

PATIENT
  Age: 65 Year
  Sex: Male
  Weight: 77.11 kg

DRUGS (6)
  1. VYTORIN [Suspect]
     Route: 048
     Dates: end: 201204
  2. LUPRON DEPOT [Suspect]
     Indication: PROSTATE CANCER
     Dates: start: 2010, end: 201112
  3. KEPRA [Concomitant]
     Indication: CONVULSION
  4. CELECOXIB [Concomitant]
     Indication: DEPRESSION
  5. SYNTHROID [Concomitant]
     Indication: HYPOTHYROIDISM
  6. CELEXA [Concomitant]

REACTIONS (11)
  - Cerebrovascular accident [Recovered/Resolved]
  - Asthenia [Recovered/Resolved]
  - Aphasia [Recovered/Resolved]
  - Musculoskeletal disorder [Not Recovered/Not Resolved]
  - Motor dysfunction [Recovering/Resolving]
  - Hypertension [Recovered/Resolved]
  - Fall [Recovered/Resolved]
  - Nausea [Recovered/Resolved]
  - Fall [Recovered/Resolved]
  - Aphasia [Recovering/Resolving]
  - Balance disorder [Unknown]
